FAERS Safety Report 16781956 (Version 1)
Quarter: 2019Q3

REPORT INFORMATION
  Report Type: Spontaneous
  Country: GB (occurrence: GB)
  Receive Date: 20190906
  Receipt Date: 20190906
  Transmission Date: 20191005
  Serious: Yes (Other)
  Sender: FDA-Public Use
  Company Number: GB-BAUSCH-BL-2019-024619

PATIENT
  Age: 67 Year
  Sex: Female
  Weight: 63.04 kg

DRUGS (1)
  1. TIMOLOL. [Suspect]
     Active Substance: TIMOLOL
     Indication: GLAUCOMA
     Route: 065
     Dates: start: 201811, end: 20190804

REACTIONS (4)
  - Lethargy [Unknown]
  - Depression [Unknown]
  - Palpitations [Unknown]
  - Anxiety [Unknown]
